FAERS Safety Report 7824267-2 (Version None)
Quarter: 2011Q4

REPORT INFORMATION
  Report Type: 
  Country: None (occurrence: None)
  Receive Date: 20111019
  Receipt Date: 20111017
  Transmission Date: 20120403
  Serious: No
  Sender: FDA-Public Use
  Company Number: US-B.I. PHARMACEUTICALS,INC./RIDGEFIELD-2011-BP-24450BP

PATIENT
  Sex: Female

DRUGS (12)
  1. PRADAXA [Suspect]
     Indication: ATRIAL FIBRILLATION
     Dosage: 300 MG
     Route: 048
     Dates: start: 20111003
  2. CO Q10 [Concomitant]
     Dosage: 300 MG
  3. TYLENOL-500 [Concomitant]
     Indication: HEADACHE
  4. TYLENOL-500 [Concomitant]
     Indication: PAIN IN EXTREMITY
  5. VITAMIN D [Concomitant]
     Dosage: 2000 U
  6. CALCIUM CARBONATE [Concomitant]
     Dosage: 1200 MG
  7. LUTIN [Concomitant]
     Indication: MACULAR DEGENERATION
  8. BYSTOLIC [Concomitant]
     Dosage: 10 MG
  9. SIMVASTATIN [Concomitant]
     Dosage: 20 MG
  10. TONIC WATER W QUININE [Concomitant]
     Indication: PAIN IN EXTREMITY
  11. DIGOXIN [Concomitant]
     Indication: CARDIAC DISORDER
     Dosage: 125 MG
  12. FOLIC ACID [Concomitant]
     Dosage: 400 MG

REACTIONS (1)
  - DIZZINESS [None]
